FAERS Safety Report 8311049-0 (Version None)
Quarter: 2012Q2

REPORT INFORMATION
  Report Type: 
  Country: None (occurrence: None)
  Receive Date: 20120425
  Receipt Date: 20120419
  Transmission Date: 20120825
  Serious: No
  Sender: FDA-Public Use
  Company Number: US-BIOGENIDEC-2012BI013716

PATIENT
  Sex: Female

DRUGS (3)
  1. TYSABRI [Suspect]
     Indication: MULTIPLE SCLEROSIS
     Route: 042
     Dates: start: 20090222, end: 20120101
  2. TYSABRI [Suspect]
     Route: 042
     Dates: start: 20120201
  3. BENADRYL [Concomitant]
     Indication: PREMEDICATION
     Dates: start: 20120301

REACTIONS (11)
  - BALANCE DISORDER [None]
  - DIZZINESS [None]
  - HAEMOGLOBIN DECREASED [None]
  - FATIGUE [None]
  - BLOOD IRON DECREASED [None]
  - MEMORY IMPAIRMENT [None]
  - GAIT DISTURBANCE [None]
  - PAIN IN EXTREMITY [None]
  - ANAEMIA [None]
  - MALAISE [None]
  - DYSPNOEA [None]
